FAERS Safety Report 5465525-9 (Version None)
Quarter: 2007Q3

REPORT INFORMATION
  Report Type: 
  Country: None (occurrence: None)
  Receive Date: 20070919
  Receipt Date: 20070905
  Transmission Date: 20080115
  Serious: Yes (Other)
  Sender: FDA-Public Use
  Company Number: 161126ISR

PATIENT
  Age: 58 Year
  Sex: Male

DRUGS (1)
  1. SIMVASTATIN [Suspect]
     Indication: HYPERCHOLESTEROLAEMIA
     Dosage: (40 MG) ORAL
     Route: 048
     Dates: start: 20050209, end: 20060701

REACTIONS (2)
  - AFFECTIVE DISORDER [None]
  - SUICIDAL IDEATION [None]
